FAERS Safety Report 7998327-X (Version None)
Quarter: 2011Q4

REPORT INFORMATION
  Report Type: 
  Country: None (occurrence: None)
  Receive Date: 20111221
  Receipt Date: 20110714
  Transmission Date: 20120403
  Serious: No
  Sender: FDA-Public Use
  Company Number: US-GLAXOSMITHKLINE-A0936853A

PATIENT
  Age: 70 Year
  Sex: Male

DRUGS (5)
  1. ALLOPURINOL [Concomitant]
  2. LOVAZA [Suspect]
     Indication: PRODUCT USED FOR UNKNOWN INDICATION
     Dosage: 1G FOUR TIMES PER DAY
     Route: 048
     Dates: start: 20070801
  3. LISINOPRIL [Concomitant]
  4. PROZAC [Concomitant]
  5. LIPITOR [Concomitant]

REACTIONS (3)
  - PRODUCT ODOUR ABNORMAL [None]
  - VOMITING [None]
  - PRODUCT QUALITY ISSUE [None]
